FAERS Safety Report 5295074-2 (Version None)
Quarter: 2007Q2

REPORT INFORMATION
  Report Type: 
  Country: None (occurrence: None)
  Receive Date: 20070412
  Receipt Date: 20070410
  Transmission Date: 20071010
  Serious: Yes (Other)
  Sender: FDA-Public Use
  Company Number: AR-BRISTOL-MYERS SQUIBB COMPANY-13717889

PATIENT
  Age: 47 Year
  Sex: Male

DRUGS (6)
  1. REYATAZ [Suspect]
     Dates: start: 20070201, end: 20070220
  2. RITONAVIR [Suspect]
     Dates: start: 20070201, end: 20070220
  3. SAQUINAVIR [Suspect]
     Dates: start: 20070201, end: 20070220
  4. ZIDOVUDINE [Suspect]
     Dates: start: 20070201, end: 20070220
  5. CLONAZEPAM [Concomitant]
     Indication: ANXIETY
  6. CLONAZEPAM [Concomitant]
     Indication: DEPRESSION

REACTIONS (1)
  - HEPATOTOXICITY [None]
